FAERS Safety Report 18298702 (Version 1)
Quarter: 2020Q3

REPORT INFORMATION
  Report Type: Spontaneous
  Country: US (occurrence: US)
  Receive Date: 20200923
  Receipt Date: 20200923
  Transmission Date: 20201104
  Serious: Yes (Hospitalization, Other)
  Sender: FDA-Public Use
  Company Number: US-LUPIN PHARMACEUTICALS INC.-2020-06065

PATIENT
  Sex: Male

DRUGS (3)
  1. PHENCYCLIDINE [Suspect]
     Active Substance: PHENCYCLIDINE
     Indication: PRODUCT USED FOR UNKNOWN INDICATION
     Dosage: UNK (14?YEAR HISTORY OF PHENCYCLIDINE (PCP) ABUSE)
     Route: 064
  2. FERROUS SULFATE. [Suspect]
     Active Substance: FERROUS SULFATE
     Indication: PRENATAL CARE
     Dosage: UNK
     Route: 064
  3. SERTRALINE [Suspect]
     Active Substance: SERTRALINE HYDROCHLORIDE
     Indication: PRENATAL CARE
     Dosage: UNK
     Route: 064

REACTIONS (8)
  - Irritability [Recovering/Resolving]
  - Eye movement disorder [Recovering/Resolving]
  - Hypotonia neonatal [Recovering/Resolving]
  - Hypertonia [Recovering/Resolving]
  - Meconium abnormal [Recovering/Resolving]
  - Respiratory distress [Recovering/Resolving]
  - Hyporeflexia [Recovering/Resolving]
  - Foetal exposure during pregnancy [Unknown]
